FAERS Safety Report 8489707-7 (Version None)
Quarter: 2012Q3

REPORT INFORMATION
  Report Type: 
  Country: None (occurrence: None)
  Receive Date: 20120705
  Receipt Date: 20120628
  Transmission Date: 20120928
  Serious: Yes (Hospitalization)
  Sender: FDA-Public Use
  Company Number: GB-GLAXOSMITHKLINE-B0791873B

PATIENT
  Sex: Male

DRUGS (5)
  1. AMLODIPINE [Concomitant]
  2. MOVIPREP [Concomitant]
  3. BENDROFLUMETHIAZIDE [Concomitant]
  4. IMODIUM [Concomitant]
  5. PAZOPANIB [Suspect]
     Indication: METASTATIC RENAL CELL CARCINOMA
     Route: 048
     Dates: start: 20110308, end: 20120613

REACTIONS (1)
  - URINARY RETENTION [None]
